FAERS Safety Report 23780969 (Version 2)
Quarter: 2025Q1

REPORT INFORMATION
  Report Type: Spontaneous
  Country: US (occurrence: US)
  Receive Date: 20240425
  Receipt Date: 20250125
  Transmission Date: 20250409
  Serious: No
  Sender: TAKEDA
  Company Number: US-TAKEDA-2024TUS037864

PATIENT
  Sex: Female
  Weight: 49 kg

DRUGS (3)
  1. MOTEGRITY [Suspect]
     Active Substance: PRUCALOPRIDE SUCCINATE
     Indication: Product used for unknown indication
  2. PRUCALOPRIDE [Suspect]
     Active Substance: PRUCALOPRIDE
     Indication: Product used for unknown indication
  3. MILK OF MAGNESIA [Concomitant]
     Active Substance: MAGNESIUM HYDROXIDE

REACTIONS (9)
  - Spinal pain [Unknown]
  - Depression [Unknown]
  - Gastrointestinal pain [Unknown]
  - Weight increased [Unknown]
  - Frequent bowel movements [Unknown]
  - Product use issue [Unknown]
  - Illness [Unknown]
  - Fatigue [Unknown]
  - Headache [Unknown]
